FAERS Safety Report 5061945-5 (Version None)
Quarter: 2006Q3

REPORT INFORMATION
  Report Type: 
  Country: None (occurrence: None)
  Receive Date: 20060726
  Receipt Date: 20060425
  Transmission Date: 20061208
  Serious: Yes (Hospitalization)
  Sender: FDA-Public Use
  Company Number: US-BRISTOL-MYERS SQUIBB COMPANY-13417878

PATIENT
  Age: 57 Year
  Sex: Male
  Weight: 77 kg

DRUGS (26)
  1. ERBITUX [Suspect]
     Indication: NON-SMALL CELL LUNG CANCER METASTATIC
     Route: 042
     Dates: start: 20060327, end: 20060417
  2. PEMETREXED DISODIUM [Suspect]
     Indication: NON-SMALL CELL LUNG CANCER METASTATIC
     Dosage: INITIAL DOSE: 27MAR06
     Route: 042
     Dates: start: 20060327, end: 20060417
  3. PLAVIX [Concomitant]
     Indication: HYPERLIPIDAEMIA
     Dates: start: 20060419
  4. CARAFATE [Concomitant]
     Indication: GASTROOESOPHAGEAL REFLUX DISEASE
     Route: 048
     Dates: start: 20051212
  5. RESTORIL [Concomitant]
     Indication: INSOMNIA
     Dates: start: 20060331
  6. DEXAMETHASONE TAB [Concomitant]
     Dates: start: 20060323
  7. B12 [Concomitant]
     Dates: start: 20060217
  8. ALBUTEROL SPIROS [Concomitant]
     Route: 055
     Dates: start: 20060411
  9. M.V.I. [Concomitant]
     Route: 048
  10. CAPTOPRIL [Concomitant]
     Indication: HYPERTENSION
     Route: 048
     Dates: start: 20060419
  11. TOPROL-XL [Concomitant]
     Indication: HYPERTENSION
     Route: 048
     Dates: start: 20060419
  12. VYTORIN [Concomitant]
     Indication: HYPERLIPIDAEMIA
     Route: 048
     Dates: start: 20060419
  13. NEXIUM [Concomitant]
     Indication: GASTROOESOPHAGEAL REFLUX DISEASE
     Route: 048
     Dates: start: 20051212
  14. MAGNESIUM OXIDE [Concomitant]
     Indication: HYPOMAGNESAEMIA
     Route: 048
     Dates: start: 20051228
  15. PERCOCET [Concomitant]
     Indication: PAIN
     Route: 048
     Dates: start: 20060316
  16. AZITHROMYCIN [Concomitant]
     Indication: RESPIRATORY TRACT INFECTION
     Route: 048
     Dates: start: 20060506, end: 20060509
  17. PHENOXYMETHYLPENICILLIN [Concomitant]
     Indication: TOOTHACHE
     Dates: start: 20060316
  18. CARDIZEM [Concomitant]
     Route: 048
  19. CARDIZEM [Concomitant]
     Route: 042
     Dates: start: 20060424
  20. HEPARIN [Concomitant]
  21. ARANESP [Concomitant]
  22. XANAX [Concomitant]
  23. VICODIN [Concomitant]
     Dosage: ONE 4-6 HRS PRN
  24. MIRALAX [Concomitant]
  25. BETAPACE [Concomitant]
     Dates: start: 20060401
  26. VITAMIN K [Concomitant]
     Indication: TOOTHACHE
     Dates: start: 20060316

REACTIONS (4)
  - ATRIAL FIBRILLATION [None]
  - CONFUSIONAL STATE [None]
  - DYSPNOEA [None]
  - MALIGNANT NEOPLASM PROGRESSION [None]
